FAERS Safety Report 25341967 (Version 3)
Quarter: 2025Q3

REPORT INFORMATION
  Report Type: Report from Study
  Country: BR (occurrence: BR)
  Receive Date: 20250521
  Receipt Date: 20250820
  Transmission Date: 20251020
  Serious: Yes (Other)
  Sender: NOVARTIS
  Company Number: BR-002147023-NVSC2025BR043961

PATIENT
  Sex: Female
  Weight: 41.7 kg

DRUGS (8)
  1. KISQALI [Suspect]
     Active Substance: RIBOCICLIB SUCCINATE
     Indication: Product used for unknown indication
     Dosage: 3 DOSAGE FORM, QD FOR 21 DAYS WITH A 7-DAY BREAK)
     Route: 065
  2. KISQALI [Suspect]
     Active Substance: RIBOCICLIB SUCCINATE
     Route: 065
  3. ESCITALOPRAM [Suspect]
     Active Substance: ESCITALOPRAM OXALATE
     Indication: Anxiety
     Route: 065
  4. LETROZOLE [Suspect]
     Active Substance: LETROZOLE
     Indication: Product used for unknown indication
     Route: 065
  5. EXEMESTANE [Suspect]
     Active Substance: EXEMESTANE
     Indication: Product used for unknown indication
     Route: 065
  6. GOSERELIN [Suspect]
     Active Substance: GOSERELIN
     Indication: Product used for unknown indication
     Dosage: UNK, Q3MO (INJECTION)
     Route: 065
  7. GOSERELIN [Suspect]
     Active Substance: GOSERELIN
     Route: 065
     Dates: start: 202403
  8. TAMOXIFEN [Concomitant]
     Active Substance: TAMOXIFEN
     Indication: Product used for unknown indication
     Route: 065

REACTIONS (21)
  - Recurrent cancer [Unknown]
  - Metastases to liver [Unknown]
  - Metastases to bone [Unknown]
  - Retching [Unknown]
  - Vulvovaginal dryness [Recovered/Resolved with Sequelae]
  - Mood swings [Not Recovered/Not Resolved]
  - Premature menopause [Not Recovered/Not Resolved]
  - Malaise [Unknown]
  - Headache [Not Recovered/Not Resolved]
  - Asthenia [Unknown]
  - Dizziness [Unknown]
  - Rash macular [Unknown]
  - Hormone level abnormal [Unknown]
  - Disease progression [Not Recovered/Not Resolved]
  - Bone disorder [Not Recovered/Not Resolved]
  - Ovarian failure [Unknown]
  - Adverse drug reaction [Unknown]
  - Alopecia [Not Recovered/Not Resolved]
  - Dry skin [Not Recovered/Not Resolved]
  - Depression [Not Recovered/Not Resolved]
  - Affective disorder [Recovered/Resolved with Sequelae]

NARRATIVE: CASE EVENT DATE: 20180101
